FAERS Safety Report 8521133-4 (Version None)
Quarter: 2012Q3

REPORT INFORMATION
  Report Type: 
  Country: None (occurrence: None)
  Receive Date: 20120719
  Receipt Date: 20120710
  Transmission Date: 20120928
  Serious: Yes (Hospitalization, Other)
  Sender: FDA-Public Use
  Company Number: US-ELI_LILLY_AND_COMPANY-US201204006647

PATIENT
  Sex: Female

DRUGS (16)
  1. DIOVAN [Concomitant]
  2. ASCORBIC ACID [Concomitant]
     Dosage: UNK, QD
  3. CYPROHEPTADINE HCL [Concomitant]
     Dosage: UNK, TID
  4. SIMVASTATIN [Concomitant]
     Indication: BLOOD CHOLESTEROL
     Dosage: UNK, QD
  5. PEPCID AC [Concomitant]
     Dosage: UNK, BID
  6. VITAMIN B-12 [Concomitant]
     Dosage: UNK, 3/W
  7. FORTEO [Suspect]
     Indication: OSTEOPOROSIS
     Dosage: 20 UG, QD
     Dates: start: 20111101
  8. FORTEO [Suspect]
     Dosage: 20 UG, QD
  9. MACRODANTIN [Concomitant]
     Indication: URINARY TRACT INFECTION
     Dosage: 50 MG, EACH EVENING
  10. DIGOXIN [Concomitant]
     Dosage: 0.125 MG, QD
  11. CO Q-10 [Concomitant]
     Dosage: 200 MG, QD
  12. ZOFRAN [Concomitant]
     Indication: ABDOMINAL DISCOMFORT
  13. AMLODIPINE [Concomitant]
  14. POTASSIUM CHLORIDE [Concomitant]
  15. NORCO [Concomitant]
     Indication: BACK DISORDER
     Dosage: UNK, PRN
  16. METOCLOPRAMIDE HYDROCHLORIDE [Concomitant]
     Indication: NAUSEA
     Dosage: UNK, EVERY 6 HRS

REACTIONS (12)
  - INTESTINAL OBSTRUCTION [None]
  - DIZZINESS [None]
  - FATIGUE [None]
  - PNEUMONIA [None]
  - ASTHENIA [None]
  - PAIN [None]
  - ABDOMINAL DISCOMFORT [None]
  - BLOOD CALCIUM INCREASED [None]
  - COLONIC PSEUDO-OBSTRUCTION [None]
  - MALAISE [None]
  - MUSCULOSKELETAL DISCOMFORT [None]
  - NAUSEA [None]
